FAERS Safety Report 19945822 (Version 2)
Quarter: 2022Q2

REPORT INFORMATION
  Report Type: Spontaneous
  Country: US (occurrence: US)
  Receive Date: 20211012
  Receipt Date: 20220408
  Transmission Date: 20220720
  Serious: Yes (Other)
  Sender: FDA-Public Use
  Company Number: US-ABBVIE-21K-163-4108098-00

PATIENT
  Age: 63 Year
  Sex: Male

DRUGS (5)
  1. LUPRON [Suspect]
     Active Substance: LEUPROLIDE ACETATE
     Indication: Prostate cancer metastatic
     Route: 030
     Dates: start: 201807
  2. ZYTIGA [Concomitant]
     Active Substance: ABIRATERONE ACETATE
     Indication: Product used for unknown indication
     Dates: start: 201809
  3. XGEVA [Concomitant]
     Active Substance: DENOSUMAB
     Indication: Product used for unknown indication
     Dates: start: 201811
  4. DOCETAXEL [Concomitant]
     Active Substance: DOCETAXEL
     Indication: Product used for unknown indication
     Dates: start: 20200106, end: 20200424
  5. XTANDI [Concomitant]
     Active Substance: ENZALUTAMIDE
     Indication: Product used for unknown indication
     Dates: start: 202011

REACTIONS (5)
  - Bone cancer metastatic [Unknown]
  - Prostate cancer metastatic [Not Recovered/Not Resolved]
  - Bone lesion [Unknown]
  - Lymphadenopathy [Unknown]
  - Bone lesion [Unknown]

NARRATIVE: CASE EVENT DATE: 20210119
